FAERS Safety Report 14337954 (Version 1)
Quarter: 2017Q4

REPORT INFORMATION
  Report Type: Spontaneous
  Country: US (occurrence: US)
  Receive Date: 20171228
  Receipt Date: 20171228
  Transmission Date: 20180321
  Serious: No
  Sender: FDA-Public Use
  Company Number: None

PATIENT
  Sex: Female
  Weight: 92.53 kg

DRUGS (1)
  1. RASUVO [Suspect]
     Active Substance: METHOTREXATE SODIUM
     Indication: RHEUMATOID ARTHRITIS
     Dosage: 20 MG (0.4 ML) Q WEEKLY SUBQ
     Route: 058
     Dates: start: 201509

REACTIONS (6)
  - Vomiting [None]
  - Diarrhoea [None]
  - Nausea [None]
  - Injection site pain [None]
  - Ligament rupture [None]
  - Influenza like illness [None]
